FAERS Safety Report 20008890 (Version 15)
Quarter: 2024Q2

REPORT INFORMATION
  Report Type: Report from Study
  Country: CA (occurrence: CA)
  Receive Date: 20211028
  Receipt Date: 20240502
  Transmission Date: 20240715
  Serious: Yes (Death, Hospitalization, Other)
  Sender: FDA-Public Use
  Company Number: CA-TAKEDA-2021TUS035053

PATIENT
  Age: 48 Year
  Sex: Female
  Weight: 46 kg

DRUGS (16)
  1. HUMAN IMMUNOGLOBULIN G [Suspect]
     Active Substance: HUMAN IMMUNOGLOBULIN G
     Indication: Primary immunodeficiency syndrome
     Dosage: 10 GRAM, 1/WEEK
     Route: 050
     Dates: start: 20190802
  2. HUMAN IMMUNOGLOBULIN G [Suspect]
     Active Substance: HUMAN IMMUNOGLOBULIN G
     Indication: Immunodeficiency common variable
     Dosage: UNK UNK, 1/WEEK
     Route: 058
  3. HUMAN IMMUNOGLOBULIN G [Suspect]
     Active Substance: HUMAN IMMUNOGLOBULIN G
     Dosage: 10 GRAM, 1/WEEK
     Route: 065
     Dates: start: 20191202
  4. HUMAN IMMUNOGLOBULIN G [Suspect]
     Active Substance: HUMAN IMMUNOGLOBULIN G
     Dosage: 10 GRAM, 1/WEEK
     Route: 058
  5. HUMAN IMMUNOGLOBULIN G [Suspect]
     Active Substance: HUMAN IMMUNOGLOBULIN G
     Dosage: 10 GRAM, 1/WEEK
     Route: 050
  6. HUMAN IMMUNOGLOBULIN G [Suspect]
     Active Substance: HUMAN IMMUNOGLOBULIN G
     Dosage: 10 GRAM, 1/WEEK
     Route: 058
  7. GAMMAGARD LIQUID [Suspect]
     Active Substance: HUMAN IMMUNOGLOBULIN G
     Indication: Product used for unknown indication
     Dosage: 40 GRAM, Q4WEEKS
     Route: 042
  8. NUCALA [Concomitant]
     Active Substance: MEPOLIZUMAB
     Indication: Asthma
     Dosage: UNK
     Route: 058
  9. PANTOPRAZOLE [Concomitant]
     Active Substance: PANTOPRAZOLE
     Indication: Product used for unknown indication
     Dosage: 40 MILLIGRAM
     Route: 065
  10. TRAMADOL [Concomitant]
     Active Substance: TRAMADOL\TRAMADOL HYDROCHLORIDE
     Indication: Product used for unknown indication
     Dosage: UNK
     Route: 065
  11. LEMBOREXANT [Concomitant]
     Active Substance: LEMBOREXANT
     Indication: Product used for unknown indication
     Dosage: 5 MILLIGRAM, QD
     Route: 065
  12. AZATHIOPRINE [Concomitant]
     Active Substance: AZATHIOPRINE
     Indication: Liver disorder
     Dosage: 75 MILLIGRAM, BID
     Route: 065
  13. AZATHIOPRINE [Concomitant]
     Active Substance: AZATHIOPRINE
     Dosage: 75 MILLIGRAM, QD
     Route: 065
  14. PREDNISONE [Concomitant]
     Active Substance: PREDNISONE
     Indication: Respiratory disorder
     Dosage: 40 MILLIGRAM
     Route: 042
  15. PREDNISONE [Concomitant]
     Active Substance: PREDNISONE
     Indication: Asthma
  16. EPIPEN [Concomitant]
     Active Substance: EPINEPHRINE
     Dosage: UNK
     Route: 065

REACTIONS (24)
  - Death [Fatal]
  - Cellulitis [Unknown]
  - Lower respiratory tract infection [Recovering/Resolving]
  - Pneumonia [Unknown]
  - Abscess limb [Not Recovered/Not Resolved]
  - Influenza [Unknown]
  - Vomiting [Unknown]
  - Asthma [Not Recovered/Not Resolved]
  - Autoimmune hepatitis [Unknown]
  - Ascites [Not Recovered/Not Resolved]
  - Osteomyelitis [Not Recovered/Not Resolved]
  - Thrombocytopenia [Unknown]
  - Mobility decreased [Not Recovered/Not Resolved]
  - Injection site bruising [Unknown]
  - Weight decreased [Not Recovered/Not Resolved]
  - Liver function test increased [Not Recovered/Not Resolved]
  - Abdominal distension [Not Recovered/Not Resolved]
  - Anaemia [Unknown]
  - Fatigue [Unknown]
  - Diarrhoea [Not Recovered/Not Resolved]
  - Subcutaneous abscess [Not Recovered/Not Resolved]
  - Dyspnoea [Not Recovered/Not Resolved]
  - Incorrect product administration duration [Recovered/Resolved]
  - Product use issue [Unknown]

NARRATIVE: CASE EVENT DATE: 20210729
